FAERS Safety Report 7986385-8 (Version None)
Quarter: 2011Q4

REPORT INFORMATION
  Report Type: 
  Country: None (occurrence: None)
  Receive Date: 20111216
  Receipt Date: 20110509
  Transmission Date: 20120403
  Serious: No
  Sender: FDA-Public Use
  Company Number: US-GLAXOSMITHKLINE-A0926604A

PATIENT
  Age: 62 Year
  Sex: Male

DRUGS (10)
  1. RAMIPRIL [Concomitant]
  2. FISH OIL [Concomitant]
  3. PLAVIX [Concomitant]
  4. VITAMIN D [Concomitant]
  5. HYDROCHLOROTHIAZIDE [Concomitant]
  6. CENTRUM SILVER [Concomitant]
  7. LIPITOR [Concomitant]
  8. COREG CR [Suspect]
     Indication: HYPERTENSION
     Dosage: 20MG TWICE PER DAY
     Route: 048
     Dates: start: 20090501
  9. ASPIRIN [Concomitant]
  10. CARDURA [Concomitant]

REACTIONS (1)
  - DRUG ADMINISTRATION ERROR [None]
